FAERS Safety Report 11057563 (Version 3)
Quarter: 2016Q1

REPORT INFORMATION
  Report Type: Report from Study
  Country: CA (occurrence: CA)
  Receive Date: 20150422
  Receipt Date: 20160314
  Transmission Date: 20160525
  Serious: Yes (Other)
  Sender: FDA-Public Use
  Company Number: CA-ROCHE-1566973

PATIENT
  Age: 78 Year
  Sex: Female
  Weight: 98.4 kg

DRUGS (14)
  1. COSOPT [Concomitant]
     Active Substance: DORZOLAMIDE HYDROCHLORIDE\TIMOLOL MALEATE
  2. BENADRYL [Concomitant]
     Active Substance: DIPHENHYDRAMINE HYDROCHLORIDE
     Indication: PREMEDICATION
     Route: 048
     Dates: start: 20141103
  3. RISEDRONATE [Concomitant]
     Active Substance: RISEDRONATE SODIUM
  4. CRANBERRY. [Concomitant]
     Active Substance: CRANBERRY
     Dosage: PILL
     Route: 065
  5. METHOTREXATE [Concomitant]
     Active Substance: METHOTREXATE
  6. FOLIC ACID. [Concomitant]
     Active Substance: FOLIC ACID
  7. ARAVA [Concomitant]
     Active Substance: LEFLUNOMIDE
  8. TRAVATAN [Concomitant]
     Active Substance: TRAVOPROST
  9. TELMISARTAN. [Concomitant]
     Active Substance: TELMISARTAN
  10. RITUXAN [Suspect]
     Active Substance: RITUXIMAB
     Indication: RHEUMATOID ARTHRITIS
     Dosage: LATEST DOSE OF RITUXIMAB WAS RECEIVED ON 17/NOV/2014.?LAST RITUXAN DOSE: 1/JUN/2015.
     Route: 042
     Dates: start: 20141103
  11. PREDNISONE. [Suspect]
     Active Substance: PREDNISONE
     Indication: PRODUCT USED FOR UNKNOWN INDICATION
     Route: 065
     Dates: end: 2015
  12. RAMIPRIL. [Suspect]
     Active Substance: RAMIPRIL
     Indication: PRODUCT USED FOR UNKNOWN INDICATION
     Route: 065
  13. TYLENOL [Concomitant]
     Active Substance: ACETAMINOPHEN
     Indication: PREMEDICATION
     Dosage: FOR PAIN EVERY 5-6 HOURS.
     Route: 048
     Dates: start: 20141103
  14. SOLU-MEDROL [Concomitant]
     Active Substance: METHYLPREDNISOLONE SODIUM SUCCINATE
     Indication: PREMEDICATION
     Route: 042
     Dates: start: 20141103

REACTIONS (7)
  - Intraocular pressure increased [Not Recovered/Not Resolved]
  - Rib fracture [Unknown]
  - Weight increased [Unknown]
  - Cough [Unknown]
  - Blood pressure fluctuation [Unknown]
  - Bone density decreased [Unknown]
  - Optic nerve injury [Not Recovered/Not Resolved]

NARRATIVE: CASE EVENT DATE: 201412
